FAERS Safety Report 8542553-8 (Version None)
Quarter: 2012Q3

REPORT INFORMATION
  Report Type: 
  Country: None (occurrence: None)
  Receive Date: 20120726
  Receipt Date: 20120723
  Transmission Date: 20120928
  Serious: Yes (Other)
  Sender: FDA-Public Use
  Company Number: US-GILEAD-2012-0057649

PATIENT
  Sex: Male

DRUGS (9)
  1. HYDROCHLOROTHIAZIDE [Concomitant]
  2. CYANOCOBALAMIN [Concomitant]
  3. EVALUPROT (ILLEGIBLE) [Concomitant]
  4. HYDROCODONE BITARTRATE AND ACETAMINOPHEN [Concomitant]
  5. BUPROPION HCL [Concomitant]
  6. LYRICA [Concomitant]
  7. COMPLERA [Suspect]
     Route: 048
  8. ATRIPLA [Suspect]
     Indication: HIV INFECTION
     Dosage: 1 DF, QD
     Route: 048
  9. FOLIC ACID [Concomitant]

REACTIONS (1)
  - PRODUCT LABEL ON WRONG PRODUCT [None]
